FAERS Safety Report 20017764 (Version 1)
Quarter: 2021Q4

REPORT INFORMATION
  Report Type: Spontaneous
  Country: US (occurrence: US)
  Receive Date: 20211101
  Receipt Date: 20211101
  Transmission Date: 20220303
  Serious: No
  Sender: FDA-Public Use
  Company Number: US-drreddys-SPO/USA/21/0143065

PATIENT
  Age: 68 Year
  Sex: Female
  Weight: 103.5 kg

DRUGS (1)
  1. IBANDRONATE SODIUM [Suspect]
     Active Substance: IBANDRONATE SODIUM
     Indication: Arthralgia
     Dates: start: 20210822

REACTIONS (4)
  - Influenza like illness [Unknown]
  - Pain in extremity [Unknown]
  - Dyspnoea [Unknown]
  - Product use in unapproved indication [Unknown]
